FAERS Safety Report 25831263 (Version 2)
Quarter: 2025Q4

REPORT INFORMATION
  Report Type: Spontaneous
  Country: US (occurrence: US)
  Receive Date: 20250922
  Receipt Date: 20251014
  Transmission Date: 20260118
  Serious: No
  Sender: ROCHE
  Company Number: US-ROCHE-10000392083

PATIENT
  Age: 49 Year
  Sex: Male

DRUGS (1)
  1. OCREVUS ZUNOVO [Suspect]
     Active Substance: HYALURONIDASE-OCSQ\OCRELIZUMAB
     Indication: Relapsing-remitting multiple sclerosis
     Route: 058
     Dates: start: 202412

REACTIONS (2)
  - Paternal exposure before pregnancy [Unknown]
  - Paternal exposure during pregnancy [Unknown]
